FAERS Safety Report 10046698 (Version 1)
Quarter: 2014Q1

REPORT INFORMATION
  Report Type: Spontaneous
  Country: CN (occurrence: CN)
  Receive Date: 20140331
  Receipt Date: 20140331
  Transmission Date: 20141002
  Serious: Yes (Other)
  Sender: FDA-Public Use
  Company Number: CN-BAYER-2014-044372

PATIENT
  Sex: Female

DRUGS (1)
  1. YASMIN [Suspect]
     Indication: MENSTRUAL CYCLE MANAGEMENT
     Route: 048

REACTIONS (4)
  - Haemorrhage in pregnancy [None]
  - Pregnancy on oral contraceptive [Not Recovered/Not Resolved]
  - Drug ineffective [None]
  - Off label use [None]
